FAERS Safety Report 5676719-1 (Version None)
Quarter: 2008Q2

REPORT INFORMATION
  Report Type: 
  Country: None (occurrence: None)
  Receive Date: 20080311
  Receipt Date: 20080102
  Transmission Date: 20081010
  Serious: No
  Sender: FDA-Public Use
  Company Number: 002#2#2007-00392

PATIENT
  Age: 60 Year
  Sex: Male
  Weight: 85.2762 kg

DRUGS (3)
  1. NEUPRO [Suspect]
     Indication: PARKINSON'S DISEASE
     Dosage: 2MG/24H,1 IN 1 D,TRANSDERMAL; 6MG/24H,1 IN 1 D, TRANSDERMAL
     Route: 062
     Dates: start: 20070901, end: 20070101
  2. NEUPRO [Suspect]
     Indication: PARKINSON'S DISEASE
     Dosage: 2MG/24H,1 IN 1 D,TRANSDERMAL; 6MG/24H,1 IN 1 D, TRANSDERMAL
     Route: 062
     Dates: start: 20070801
  3. STALEVO 100 [Concomitant]

REACTIONS (2)
  - APPLICATION SITE REACTION [None]
  - PHARMACEUTICAL PRODUCT COMPLAINT [None]
